FAERS Safety Report 7497383-5 (Version None)
Quarter: 2011Q2

REPORT INFORMATION
  Report Type: 
  Country: None (occurrence: None)
  Receive Date: 20110523
  Receipt Date: 20110516
  Transmission Date: 20111010
  Serious: Yes (Hospitalization)
  Sender: FDA-Public Use
  Company Number: JP-B.I. PHARMACEUTICALS,INC./RIDGEFIELD-2011-BP-13289NB

PATIENT
  Age: 82 Year
  Sex: Male

DRUGS (4)
  1. PRADAXA [Suspect]
     Indication: ATRIAL FIBRILLATION
     Dosage: 150 MG
     Route: 048
     Dates: start: 20110425, end: 20110502
  2. TAMSULOSIN HCL [Concomitant]
     Dosage: NR
     Route: 065
  3. ASPIRIN [Concomitant]
     Dosage: NR
     Route: 065
  4. BIO-THREE [Concomitant]
     Dosage: NR
     Route: 065

REACTIONS (2)
  - CONVULSION [None]
  - PYREXIA [None]
